FAERS Safety Report 10021218 (Version 1)
Quarter: 2014Q1

REPORT INFORMATION
  Report Type: Spontaneous
  Country: GB (occurrence: None)
  Receive Date: 20140313
  Receipt Date: 20140313
  Transmission Date: 20141002
  Serious: Yes (Other)
  Sender: FDA-Public Use
  Company Number: AUR-APL-2014-02368

PATIENT
  Age: 48 Year
  Sex: Male

DRUGS (6)
  1. PRAVASTATIN [Suspect]
     Indication: PRODUCT USED FOR UNKNOWN INDICATION
     Route: 048
     Dates: start: 201211, end: 201303
  2. SIMVASTATIN (SIMVASTATIN) [Suspect]
     Indication: PRODUCT USED FOR UNKNOWN INDICATION
     Route: 048
     Dates: start: 2005, end: 200709
  3. ATORVASTATIN (ATORVASTATIN) [Suspect]
     Indication: PRODUCT USED FOR UNKNOWN INDICATION
     Route: 048
     Dates: start: 200709, end: 200710
  4. ASPIRIN (ACETYLSALICYLIC ACID) [Concomitant]
  5. LANTUS (INSULIN GLARGINE) [Concomitant]
  6. NOVORAPID (INSULIN ASPART) [Concomitant]

REACTIONS (5)
  - Myopathy [None]
  - Neuropathy peripheral [None]
  - Sleep disorder [None]
  - Blood glucose increased [None]
  - Muscle spasms [None]
